FAERS Safety Report 10907676 (Version 1)
Quarter: 2015Q1

REPORT INFORMATION
  Report Type: Spontaneous
  Country: US (occurrence: None)
  Receive Date: 20150309
  Receipt Date: 20150309
  Transmission Date: 20150721
  Serious: Yes (Hospitalization)
  Sender: FDA-Public Use
  Company Number: None

PATIENT
  Age: 78 Year
  Sex: Male
  Weight: 73 kg

DRUGS (9)
  1. ALBUTEROL. [Concomitant]
     Active Substance: ALBUTEROL
  2. CARBOPLATIN. [Suspect]
     Active Substance: CARBOPLATIN
     Dates: end: 20140204
  3. ZOFRAN [Concomitant]
     Active Substance: ONDANSETRON HYDROCHLORIDE
  4. METHLPREDNISOLONE [Concomitant]
  5. SENOKOT [Concomitant]
     Active Substance: SENNOSIDES
  6. EMEND [Concomitant]
     Active Substance: APREPITANT
  7. BEVACIZUMAB (RHUMAB VEGF) [Suspect]
     Active Substance: BEVACIZUMAB
     Dates: end: 20140204
  8. IPRATROPIUM [Concomitant]
     Active Substance: IPRATROPIUM
  9. TAXOL [Suspect]
     Active Substance: PACLITAXEL
     Dates: end: 20140204

REACTIONS (9)
  - Blood creatinine increased [None]
  - Neutropenia [None]
  - Anaemia [None]
  - Pyrexia [None]
  - Lung infiltration [None]
  - Atelectasis [None]
  - Musculoskeletal chest pain [None]
  - Hypophagia [None]
  - Chest pain [None]

NARRATIVE: CASE EVENT DATE: 20140209
